FAERS Safety Report 6983863-5 (Version None)
Quarter: 2010Q3

REPORT INFORMATION
  Report Type: 
  Country: None (occurrence: None)
  Receive Date: 20100914
  Receipt Date: 20090310
  Transmission Date: 20110219
  Serious: Yes (Hospitalization, Disabling)
  Sender: FDA-Public Use
  Company Number: US-WYE-H08189209

PATIENT
  Sex: Male

DRUGS (12)
  1. TEMSIROLIMUS [Suspect]
     Indication: METASTATIC RENAL CELL CARCINOMA
     Dosage: UNKNOWN WEEKLY
     Route: 042
     Dates: start: 20080601
  2. TEMSIROLIMUS [Suspect]
     Indication: ADRENAL CARCINOMA
     Dosage: UNKNOWN WEEKLY
     Route: 042
     Dates: start: 20080901
  3. ASPIRIN [Concomitant]
     Route: 048
  4. CALCITRIOL [Concomitant]
  5. PHOSLO [Concomitant]
     Route: 048
  6. ZOCOR [Concomitant]
     Route: 048
  7. LEVOTHYROXINE [Concomitant]
     Dosage: 250 MCG DAILY
     Route: 048
  8. LORATADINE [Concomitant]
     Route: 048
  9. DIAZEPAM [Concomitant]
     Route: 048
  10. PAXIL [Concomitant]
     Route: 048
  11. ALLOPURINOL [Concomitant]
     Route: 048
  12. NEXIUM [Concomitant]
     Route: 048

REACTIONS (5)
  - ANAEMIA [None]
  - CHEST PAIN [None]
  - FATIGUE [None]
  - INTERSTITIAL LUNG DISEASE [None]
  - PYREXIA [None]
